FAERS Safety Report 17870380 (Version 1)
Quarter: 2020Q2

REPORT INFORMATION
  Report Type: Spontaneous
  Country: US (occurrence: US)
  Receive Date: 20200605
  Receipt Date: 20200605
  Transmission Date: 20200714
  Serious: No
  Sender: FDA-Public Use
  Company Number: None

PATIENT
  Age: 70 Year
  Sex: Female

DRUGS (1)
  1. TOBRAMYCIN (56AMPS/28DAY) 300MG/5ML LUPIN PHARMACEUTICALS [Suspect]
     Active Substance: TOBRAMYCIN
     Indication: BRONCHIECTASIS
     Dosage: ?          OTHER ROUTE:INHALED?
     Route: 055
     Dates: start: 20200515, end: 20200518

REACTIONS (4)
  - Aphonia [None]
  - Vocal cord dysfunction [None]
  - Cough [None]
  - Choking [None]

NARRATIVE: CASE EVENT DATE: 20200515
